FAERS Safety Report 14548145 (Version 4)
Quarter: 2018Q1

REPORT INFORMATION
  Report Type: Report from Study
  Country: None (occurrence: CA)
  Receive Date: 20180219
  Receipt Date: 20180315
  Transmission Date: 20180509
  Serious: Yes (Death, Life-Threatening, Hospitalization)
  Sender: FDA-Public Use
  Company Number: CA-ABBVIE-18P-028-2260854-00

PATIENT
  Age: 75 Year
  Sex: Male
  Weight: 49.03 kg

DRUGS (1)
  1. VENCLEXTA [Suspect]
     Active Substance: VENETOCLAX
     Indication: ACUTE MYELOID LEUKAEMIA
     Dosage: NOT REPORTED
     Route: 048
     Dates: start: 20180202, end: 20180214

REACTIONS (7)
  - Condition aggravated [Unknown]
  - General physical health deterioration [Unknown]
  - Dysphagia [Unknown]
  - Off label use [Unknown]
  - Disease progression [Fatal]
  - Cachexia [Fatal]
  - Febrile neutropenia [Fatal]

NARRATIVE: CASE EVENT DATE: 20180213
